FAERS Safety Report 12124473 (Version 1)
Quarter: 2016Q1

REPORT INFORMATION
  Report Type: Spontaneous
  Country: US (occurrence: None)
  Receive Date: 20160226
  Receipt Date: 20160226
  Transmission Date: 20160526
  Serious: Yes (Life-Threatening, Disabling)
  Sender: FDA-Public Use
  Company Number: None

PATIENT
  Age: 50 Year
  Sex: Male
  Weight: 84.82 kg

DRUGS (3)
  1. CIPROFLOXACIN 500MG TEVA [Suspect]
     Active Substance: CIPROFLOXACIN
     Indication: POSTOPERATIVE CARE
     Dosage: 14 TABLETS / 60 TABLETS TWICE DAILY TAKEN BY MOUTH
     Route: 048
     Dates: start: 20150501, end: 20150706
  2. VITAMIN D3 [Suspect]
     Active Substance: CHOLECALCIFEROL
  3. VITAMIN B12 [Suspect]
     Active Substance: CYANOCOBALAMIN

REACTIONS (7)
  - Neuralgic amyotrophy [None]
  - Hypoaesthesia [None]
  - Musculoskeletal pain [None]
  - Tendon rupture [None]
  - Orchitis [None]
  - Post procedural infection [None]
  - Heart rate irregular [None]

NARRATIVE: CASE EVENT DATE: 20150612
